FAERS Safety Report 8816468 (Version 1)
Quarter: 2012Q4

REPORT INFORMATION
  Report Type: Spontaneous
  Country: US (occurrence: None)
  Receive Date: 20120927
  Receipt Date: 20120927
  Transmission Date: 20130627
  Serious: Yes (Other)
  Sender: FDA-Public Use
  Company Number: AUR-APL-2012-04119

PATIENT
  Sex: Male

DRUGS (1)
  1. BISOPROLOL [Suspect]
     Indication: BLOOD PRESSURE MANAGEMENT
     Route: 048
     Dates: start: 201202

REACTIONS (5)
  - Heart rate increased [None]
  - Atrioventricular block [None]
  - Peripheral coldness [None]
  - Blood pressure diastolic decreased [None]
  - Sleep terror [None]
